FAERS Safety Report 8456353-0 (Version None)
Quarter: 2012Q2

REPORT INFORMATION
  Report Type: 
  Country: None (occurrence: None)
  Receive Date: 20120621
  Receipt Date: 20120413
  Transmission Date: 20120825
  Serious: Yes (Hospitalization)
  Sender: FDA-Public Use
  Company Number: GB-GLAXOSMITHKLINE-B0795225A

PATIENT
  Age: 60 Year
  Sex: Female

DRUGS (10)
  1. KALETRA [Suspect]
     Indication: HIV INFECTION
  2. TRAMADOL HCL [Concomitant]
  3. FLUTICASONE [Suspect]
     Indication: LOWER RESPIRATORY TRACT INFECTION
     Route: 055
  4. PREDNISOLONE [Suspect]
     Indication: LOWER RESPIRATORY TRACT INFECTION
  5. ABACAVIR [Concomitant]
  6. GABAPENTIN [Concomitant]
  7. METHOTREXATE [Concomitant]
     Indication: ARTHROPATHY
     Route: 048
  8. AMITRIPTYLINE HCL [Concomitant]
  9. TRIAMCINOLONE ACETONIDE [Suspect]
     Indication: ARTHRALGIA
     Route: 030
  10. LAMIVUDINE (EPIVIR HBV) [Concomitant]

REACTIONS (1)
  - CUSHING'S SYNDROME [None]
